FAERS Safety Report 8459512-6 (Version None)
Quarter: 2012Q2

REPORT INFORMATION
  Report Type: 
  Country: None (occurrence: None)
  Receive Date: 20120622
  Receipt Date: 20120614
  Transmission Date: 20120825
  Serious: Yes (Other)
  Sender: FDA-Public Use
  Company Number: US-US-EMD SERONO, INC.-7140911

PATIENT
  Sex: Female

DRUGS (3)
  1. REBIF [Suspect]
     Indication: MULTIPLE SCLEROSIS
     Route: 058
     Dates: start: 20111213
  2. IMURAN [Concomitant]
     Indication: COLITIS ULCERATIVE
  3. PANTOPRAZOLE [Concomitant]
     Indication: COLITIS ULCERATIVE

REACTIONS (2)
  - MUSCLE SPASMS [None]
  - COLITIS ULCERATIVE [None]
